FAERS Safety Report 18512778 (Version 1)
Quarter: 2020Q4

REPORT INFORMATION
  Report Type: Report from Study
  Country: FR (occurrence: FR)
  Receive Date: 20201117
  Receipt Date: 20201117
  Transmission Date: 20210114
  Serious: Yes (Hospitalization)
  Sender: FDA-Public Use
  Company Number: FR-BIOVITRUM-2020FR6351

PATIENT
  Age: 68 Year
  Sex: Male

DRUGS (6)
  1. KINERET [Suspect]
     Active Substance: ANAKINRA
     Dosage: 100 MG/ 0.67 ML
     Dates: start: 20200420
  2. KINERET [Suspect]
     Active Substance: ANAKINRA
     Dosage: 100 MG/ 0.67 ML
     Dates: start: 20200414
  3. ARIXTRA [Concomitant]
     Active Substance: FONDAPARINUX SODIUM
     Dates: start: 20200426
  4. KINERET [Suspect]
     Active Substance: ANAKINRA
     Indication: COVID-19
     Dosage: 100 MG/ 0.67 ML
     Dates: start: 20200413
  5. KINERET [Suspect]
     Active Substance: ANAKINRA
     Dosage: 100 MG/ 0.67 ML
     Dates: start: 20200419
  6. INEXIUM [Concomitant]
     Active Substance: ESOMEPRAZOLE

REACTIONS (1)
  - Hepatocellular injury [Recovered/Resolved]

NARRATIVE: CASE EVENT DATE: 20200428
